FAERS Safety Report 6191252-9 (Version None)
Quarter: 2009Q2

REPORT INFORMATION
  Report Type: 
  Country: None (occurrence: None)
  Receive Date: 20090515
  Receipt Date: 20090504
  Transmission Date: 20091009
  Serious: Yes (Other)
  Sender: FDA-Public Use
  Company Number: ZA-SANOFI-SYNTHELABO-A01200904585

PATIENT
  Age: 55 Year
  Sex: Female

DRUGS (5)
  1. ZOLPIDEM TARTRATE [Concomitant]
     Indication: DRUG USE FOR UNKNOWN INDICATION
     Dosage: UNK
     Route: 048
  2. DURAGESIC-100 [Concomitant]
     Indication: PAIN
     Dosage: UNK
     Route: 065
  3. ALIMTA [Concomitant]
     Indication: MESOTHELIOMA
     Dosage: UNK
     Route: 065
  4. CISPLATIN [Concomitant]
     Indication: MESOTHELIOMA
     Dosage: UNK
     Route: 065
  5. IVEDAL [Suspect]
     Indication: SLEEP DISORDER
     Route: 048

REACTIONS (2)
  - PRODUCT SUBSTITUTION ISSUE [None]
  - TONIC CLONIC MOVEMENTS [None]
